FAERS Safety Report 15862422 (Version 1)
Quarter: 2019Q1

REPORT INFORMATION
  Report Type: Spontaneous
  Country: DE (occurrence: DE)
  Receive Date: 20190124
  Receipt Date: 20190124
  Transmission Date: 20190417
  Serious: Yes (Hospitalization)
  Sender: FDA-Public Use
  Company Number: DE-TEVA-2019-DE-999372

PATIENT
  Age: 85 Year
  Sex: Male

DRUGS (2)
  1. LEVODOPA/CARBIDOPA-RATIOPHARM 100MG/25MG TABLETTEN [Suspect]
     Active Substance: CARBIDOPA\LEVODOPA
     Indication: TREMOR
  2. LEVODOPA/CARBIDOPA-RATIOPHARM 100MG/25MG TABLETTEN [Suspect]
     Active Substance: CARBIDOPA\LEVODOPA
     Indication: PARKINSON^S DISEASE
     Dosage: 4 DOSAGE FORMS DAILY; 1 DF CONTAINS 100 MG LEVODOPA AND 25 MG CARBIDOPA; FIRST INTAKE AT 07:00 A.M.,
     Route: 048

REACTIONS (8)
  - Blepharospasm [Not Recovered/Not Resolved]
  - Trance [Not Recovered/Not Resolved]
  - On and off phenomenon [Not Recovered/Not Resolved]
  - Confusional state [Not Recovered/Not Resolved]
  - Hallucination [Not Recovered/Not Resolved]
  - Hypotonia [Not Recovered/Not Resolved]
  - Somnolence [Not Recovered/Not Resolved]
  - Nightmare [Not Recovered/Not Resolved]

NARRATIVE: CASE EVENT DATE: 20190112
